FAERS Safety Report 16117315 (Version 1)
Quarter: 2019Q2

REPORT INFORMATION
  Report Type: Spontaneous
  Country: US (occurrence: US)
  Receive Date: 20190325
  Receipt Date: 20190325
  Transmission Date: 20190711
  Serious: Yes (Other)
  Sender: FDA-Public Use
  Company Number: None

PATIENT
  Age: 76 Year
  Sex: Female
  Weight: 53.55 kg

DRUGS (13)
  1. AZELASTINE. [Concomitant]
     Active Substance: AZELASTINE HYDROCHLORIDE
  2. FLUTICASONE PROPIONATE. [Concomitant]
     Active Substance: FLUTICASONE PROPIONATE
  3. CITRACAL [Concomitant]
     Active Substance: CALCIUM CITRATE
  4. VITAMIN B12 [Concomitant]
     Active Substance: CYANOCOBALAMIN
  5. CARVEDILOL. [Concomitant]
     Active Substance: CARVEDILOL
  6. PRAVASTATIN. [Concomitant]
     Active Substance: PRAVASTATIN
  7. CHLORTHALIDONE. [Concomitant]
     Active Substance: CHLORTHALIDONE
  8. BUPROPION HCL [Concomitant]
     Active Substance: BUPROPION HYDROCHLORIDE
  9. NITROFURANTOIN MONO-MCR 100 MG (GENERIC FOR MACROBID 100 MG CAPSULE [Suspect]
     Active Substance: NITROFURANTOIN\NITROFURANTOIN MONOHYDRATE
     Indication: URINARY TRACT INFECTION
     Dosage: ?          QUANTITY:1 TEASPOON(S);?
     Route: 060
     Dates: start: 20190320, end: 20190322
  10. ENALAPRIL MALEATE. [Concomitant]
     Active Substance: ENALAPRIL MALEATE
  11. GERITOL [Concomitant]
     Active Substance: MINERALS\VITAMINS
  12. VITAMIN B6 [Concomitant]
     Active Substance: PYRIDOXINE HYDROCHLORIDE
  13. IPRATROPIUM [Concomitant]
     Active Substance: IPRATROPIUM

REACTIONS (12)
  - Nausea [None]
  - Somnolence [None]
  - Insomnia [None]
  - Pruritus [None]
  - Dehydration [None]
  - Headache [None]
  - Drug hypersensitivity [None]
  - Rash erythematous [None]
  - Pyrexia [None]
  - Vomiting [None]
  - Fatigue [None]
  - Decreased appetite [None]

NARRATIVE: CASE EVENT DATE: 20190322
